FAERS Safety Report 16869929 (Version 1)
Quarter: 2019Q3

REPORT INFORMATION
  Report Type: Spontaneous
  Country: CN (occurrence: CN)
  Receive Date: 20190930
  Receipt Date: 20190930
  Transmission Date: 20191005
  Serious: Yes (Other)
  Sender: FDA-Public Use
  Company Number: CN-NAPPMUNDI-GBR-2019-0069939

PATIENT
  Age: 65 Year
  Sex: Male
  Weight: 40 kg

DRUGS (1)
  1. OXYCODONE HYDROCHLORIDE. [Suspect]
     Active Substance: OXYCODONE HYDROCHLORIDE
     Indication: CANCER PAIN
     Dosage: 20 MG, BID
     Route: 048
     Dates: start: 20190819, end: 20190820

REACTIONS (7)
  - Disorganised speech [Recovered/Resolved]
  - Abnormal behaviour [Recovered/Resolved]
  - Thinking abnormal [Recovered/Resolved]
  - Psychomotor hyperactivity [Unknown]
  - Indifference [Recovering/Resolving]
  - Pupils unequal [Unknown]
  - Hallucination [Recovered/Resolved]

NARRATIVE: CASE EVENT DATE: 20190819
